FAERS Safety Report 7083861-X (Version None)
Quarter: 2010Q4

REPORT INFORMATION
  Report Type: 
  Country: None (occurrence: None)
  Receive Date: 20101104
  Receipt Date: 20101026
  Transmission Date: 20110411
  Serious: Yes (Other)
  Sender: FDA-Public Use
  Company Number: ES-GENENTECH-302724

PATIENT
  Sex: Female

DRUGS (1)
  1. MABTHERA [Suspect]
     Indication: LUPUS NEPHRITIS
     Dosage: UNK
     Route: 065

REACTIONS (1)
  - CERVIX CARCINOMA [None]
